FAERS Safety Report 4334812-X (Version None)
Quarter: 2004Q2

REPORT INFORMATION
  Report Type: 
  Country: None (occurrence: None)
  Receive Date: 20040408
  Receipt Date: 20040329
  Transmission Date: 20050107
  Serious: Yes (Death, Hospitalization, Other)
  Sender: FDA-Public Use
  Company Number: FR-BRISTOL-MYERS SQUIBB COMPANY-12545331

PATIENT
  Age: 27 Year
  Sex: Male
  Weight: 116 kg

DRUGS (3)
  1. AMIKLIN INJ [Suspect]
     Route: 042
     Dates: start: 20031111, end: 20031114
  2. AXEPIM INJ [Suspect]
     Route: 042
     Dates: start: 20031111, end: 20031113
  3. HOLOXAN [Concomitant]
     Dates: start: 20031104, end: 20031108

REACTIONS (7)
  - BLOOD POTASSIUM DECREASED [None]
  - BLOOD POTASSIUM INCREASED [None]
  - GENERAL PHYSICAL CONDITION ABNORMAL [None]
  - INFECTION [None]
  - OVERDOSE [None]
  - PULMONARY OEDEMA [None]
  - RENAL FAILURE ACUTE [None]
